FAERS Safety Report 9237891 (Version 3)
Quarter: 2013Q2

REPORT INFORMATION
  Report Type: Spontaneous
  Country: NL (occurrence: None)
  Receive Date: 20130415
  Receipt Date: 20130617
  Transmission Date: 20140414
  Serious: Yes (Hospitalization)
  Sender: FDA-Public Use
  Company Number: 2013-1481

PATIENT
  Age: 53 Year
  Sex: Female
  Weight: 74.8 kg

DRUGS (4)
  1. SOMATULINE AUTOSOLUTION 120MG [Suspect]
     Indication: CONGENITAL CYSTIC KIDNEY DISEASE
     Dates: start: 20121203
  2. SOMATULINE AUTOSOLUTION 120MG [Suspect]
     Indication: OFF LABEL USE
     Dates: start: 20121203
  3. LISINOPRIL(LISINOPRIL) [Concomitant]
  4. METOPROLOL (METOPROLOL) [Concomitant]

REACTIONS (14)
  - Pyrexia [None]
  - Liver function test abnormal [None]
  - Presyncope [None]
  - Urinary sediment present [None]
  - Loss of consciousness [None]
  - Fall [None]
  - Hepatic cyst infection [None]
  - Aspartate aminotransferase increased [None]
  - Alanine aminotransferase increased [None]
  - Blood bilirubin increased [None]
  - Blood alkaline phosphatase increased [None]
  - Bilirubin conjugated increased [None]
  - Blood creatinine increased [None]
  - Cholelithiasis [None]
